FAERS Safety Report 5896375-7 (Version None)
Quarter: 2008Q3

REPORT INFORMATION
  Report Type: 
  Country: None (occurrence: None)
  Receive Date: 20080923
  Receipt Date: 20080908
  Transmission Date: 20090109
  Serious: Yes (Death, Hospitalization, Other)
  Sender: FDA-Public Use
  Company Number: KADN20080350

PATIENT
  Age: 19 Year
  Sex: Male

DRUGS (5)
  1. MORPHINE [Suspect]
     Dosage: UNKNOWN, UNKNOWN, ORAL
     Route: 048
     Dates: end: 20050101
  2. ALPRAZOLAM [Suspect]
     Dosage: UNKNOWN, UNKNOWN, ORAL
     Route: 048
     Dates: end: 20050101
  3. MARIJUANA [Suspect]
     Dosage: UNKNOWN, UNKNOWN, INHALATION
     Route: 055
     Dates: end: 20050101
  4. COCAINE [Suspect]
     Dosage: UNKNOWN, UNKNOWN, INHALATION
     Route: 055
     Dates: end: 20050101
  5. ALCOHOL [Suspect]
     Dosage: UNKNOWN, UNKNOWN, ORAL
     Route: 048
     Dates: end: 20050101

REACTIONS (19)
  - ANION GAP INCREASED [None]
  - BLOOD PRESSURE SYSTOLIC DECREASED [None]
  - BRAIN DEATH [None]
  - BRAIN OEDEMA [None]
  - CEREBRAL ISCHAEMIA [None]
  - DECEREBRATION [None]
  - DEPRESSED LEVEL OF CONSCIOUSNESS [None]
  - DRUG ABUSE [None]
  - DRUG TOXICITY [None]
  - ELECTROCARDIOGRAM QRS COMPLEX SHORTENED [None]
  - ENCEPHALOPATHY [None]
  - FLUSHING [None]
  - GASTROINTESTINAL SOUNDS ABNORMAL [None]
  - HYPOTENSION [None]
  - HYPOXIA [None]
  - LOSS OF CONSCIOUSNESS [None]
  - MIOSIS [None]
  - RESPIRATORY DEPRESSION [None]
  - UNRESPONSIVE TO STIMULI [None]
